FAERS Safety Report 5262912-9 (Version None)
Quarter: 2007Q1

REPORT INFORMATION
  Report Type: 
  Country: None (occurrence: None)
  Receive Date: 20070312
  Receipt Date: 20070305
  Transmission Date: 20070707
  Serious: Yes (Death, Other)
  Sender: FDA-Public Use
  Company Number: PHBS2007JP03325

PATIENT
  Age: 56 Year
  Sex: Male

DRUGS (5)
  1. CYCLOSPORINE [Suspect]
     Indication: COLITIS ULCERATIVE
     Dosage: UNK, UNK
     Route: 042
  2. MESALAZINE [Concomitant]
     Dosage: UNK, UNK
     Route: 048
  3. BETAMETHASONE [Concomitant]
     Route: 065
  4. PREDNISOLONE [Concomitant]
     Dosage: UNK, UNK
     Route: 048
  5. PREDNISOLONE [Concomitant]
     Route: 042

REACTIONS (5)
  - CHEST X-RAY ABNORMAL [None]
  - COLECTOMY TOTAL [None]
  - DYSPNOEA [None]
  - PNEUMOCYSTIS JIROVECI PNEUMONIA [None]
  - PYREXIA [None]
